FAERS Safety Report 21139285 (Version 1)
Quarter: 2022Q3

REPORT INFORMATION
  Report Type: Spontaneous
  Country: FR (occurrence: FR)
  Receive Date: 20220727
  Receipt Date: 20220727
  Transmission Date: 20221027
  Serious: Yes (Hospitalization)
  Sender: FDA-Public Use
  Company Number: None

PATIENT
  Age: 53 Year
  Sex: Male
  Weight: 37.7 kg

DRUGS (10)
  1. BIKTARVY [Suspect]
     Active Substance: BICTEGRAVIR SODIUM\EMTRICITABINE\TENOFOVIR ALAFENAMIDE FUMARATE
     Indication: HIV infection
     Dosage: 1 DOSAGE FORM, QD
     Route: 048
     Dates: start: 2018
  2. TRIUMEQ [Suspect]
     Active Substance: ABACAVIR SULFATE\DOLUTEGRAVIR SODIUM\LAMIVUDINE
     Indication: HIV infection
     Dosage: 1 DOSAGE FORM, QD
     Route: 048
     Dates: start: 2016, end: 201801
  3. LANSOPRAZOLE ABBOTT [Concomitant]
  4. TAHOR [Concomitant]
     Active Substance: ATORVASTATIN CALCIUM
  5. RAMIPRIL [Concomitant]
     Active Substance: RAMIPRIL
  6. FOLIC ACID [Concomitant]
     Active Substance: FOLIC ACID
  7. AMLODIPINE BESYLATE [Concomitant]
     Active Substance: AMLODIPINE BESYLATE
  8. KARDEGIC [Concomitant]
     Active Substance: ASPIRIN DL-LYSINE
  9. BACTRIM [Concomitant]
     Active Substance: SULFAMETHOXAZOLE\TRIMETHOPRIM
  10. SKENAN [Concomitant]
     Active Substance: MORPHINE SULFATE

REACTIONS (2)
  - Vasculitis necrotising [Not Recovered/Not Resolved]
  - Extremity necrosis [Not Recovered/Not Resolved]
